FAERS Safety Report 7932008 (Version 8)
Quarter: 2012Q4

REPORT INFORMATION
  Report Type: Report from Study
  Country: IL (occurrence: IL)
  Receive Date: 20110505
  Receipt Date: 20121005
  Transmission Date: 20130627
  Serious: Yes (Hospitalization, Other)
  Sender: FDA-Public Use
  Company Number: IL-BRISTOL-MYERS SQUIBB COMPANY-15714025

PATIENT
  Age: 68 Year
  Sex: Male

DRUGS (5)
  1. BLINDED: SAXAGLIPTIN [Suspect]
     Indication: TYPE 2 DIABETES MELLITUS
     Dosage: stopped on 06Apr2011
     Dates: start: 20110202
  2. LANTUS [Suspect]
     Indication: DIABETES MELLITUS
  3. HUMALOG [Suspect]
     Indication: DIABETES MELLITUS
     Dosage: Lispro
  4. BLINDED: PLACEBO [Suspect]
     Indication: TYPE 2 DIABETES MELLITUS
     Dates: start: 20110202
  5. ASPIRIN [Concomitant]
     Dosage: 1 Df={100mg

REACTIONS (1)
  - Pancreatitis [Recovered/Resolved]
